FAERS Safety Report 8560764 (Version 2)
Quarter: 2014Q1

REPORT INFORMATION
  Report Type: Report from Study
  Country: US (occurrence: US)
  Receive Date: 20120514
  Receipt Date: 20140327
  Transmission Date: 20141002
  Serious: Yes (Other)
  Sender: FDA-Public Use
  Company Number: US-ALEXION-A201100511

PATIENT
  Sex: Male

DRUGS (6)
  1. SOLIRIS [Suspect]
     Indication: PAROXYSMAL NOCTURNAL HAEMOGLOBINURIA
     Dosage: 900 MG, Q2W
     Route: 042
  2. DEPAKOTE [Concomitant]
     Indication: CONVULSION
     Dosage: 500 MG, QD
  3. LACOSAMIDE [Concomitant]
     Indication: CONVULSION
     Dosage: 200 MG, BID
  4. ATIVAN [Concomitant]
     Indication: ANXIETY
     Dosage: 1 MG, PRN
  5. METHYLIN [Concomitant]
     Indication: ATTENTION DEFICIT/HYPERACTIVITY DISORDER
     Dosage: 10 MG, BID
  6. MELATONINA [Concomitant]
     Indication: INSOMNIA
     Dosage: 6 MG, QD

REACTIONS (4)
  - Mass excision [Unknown]
  - Calcinosis [Not Recovered/Not Resolved]
  - Nasopharyngitis [Unknown]
  - Cough [Not Recovered/Not Resolved]
